FAERS Safety Report 7992408-2 (Version None)
Quarter: 2011Q4

REPORT INFORMATION
  Report Type: 
  Country: None (occurrence: None)
  Receive Date: 20111219
  Receipt Date: 20101222
  Transmission Date: 20120403
  Serious: No
  Sender: FDA-Public Use
  Company Number: US-ASTRAZENECA-2010SE60405

PATIENT
  Age: 32 Year
  Sex: Male

DRUGS (1)
  1. CRESTOR [Suspect]
     Route: 048
     Dates: start: 20101101

REACTIONS (4)
  - GENITAL BURNING SENSATION [None]
  - DYSURIA [None]
  - ABDOMINAL PAIN [None]
  - DRUG DOSE OMISSION [None]
